FAERS Safety Report 7089413-X (Version None)
Quarter: 2010Q4

REPORT INFORMATION
  Report Type: 
  Country: None (occurrence: None)
  Receive Date: 20101108
  Receipt Date: 20101101
  Transmission Date: 20110411
  Serious: Yes (Life-Threatening, Hospitalization, Disabling, Other)
  Sender: FDA-Public Use
  Company Number: US-ELI_LILLY_AND_COMPANY-US201007002555

PATIENT
  Sex: Male
  Weight: 86.168 kg

DRUGS (15)
  1. BYETTA [Suspect]
     Indication: DIABETES MELLITUS
     Dosage: 10 UG, 2/D
     Route: 058
     Dates: start: 20060101, end: 20070701
  2. LANTUS [Concomitant]
     Indication: DIABETES MELLITUS
  3. LEVEMIR [Concomitant]
     Dosage: 30 U, 2/D
     Dates: end: 20070701
  4. GLUCOTROL XL [Concomitant]
     Dosage: 10 MG, DAILY (1/D)
     Dates: end: 20070701
  5. GLUCOPHAGE [Concomitant]
     Dosage: 875 MG, 2/D
     Dates: end: 20070701
  6. PEPCID [Concomitant]
     Dosage: 20 MG, 2/D
  7. ZOCOR [Concomitant]
     Indication: HYPERLIPIDAEMIA
     Dosage: 40 MG, EACH EVENING
     Dates: end: 20070701
  8. LOPRESSOR [Concomitant]
     Indication: HYPERTENSION
     Dosage: 25 MG, 2/D
     Route: 048
  9. LOPRESSOR [Concomitant]
     Dosage: 75 MG, 2/D
     Dates: start: 20070720
  10. LOPRESSOR [Concomitant]
     Dosage: 100 MG, 2/D
     Route: 048
  11. PLAVIX [Concomitant]
     Dosage: 75 MG, DAILY (1/D)
     Dates: end: 20070701
  12. LISINOPRIL [Concomitant]
     Dosage: 30 MG, DAILY (1/D)
  13. ASPIRIN [Concomitant]
     Dosage: 325 MG, DAILY (1/D)
  14. ASPIRIN [Concomitant]
     Dosage: 325 MG, DAILY (1/D)
     Route: 054
     Dates: start: 20070701
  15. NITROGLYCERIN [Concomitant]
     Dosage: UNK, AS NEEDED
     Route: 060

REACTIONS (18)
  - ACUTE RESPIRATORY DISTRESS SYNDROME [None]
  - AMNESIA [None]
  - ARTHRALGIA [None]
  - ASCITES [None]
  - DISTURBANCE IN ATTENTION [None]
  - JOINT STIFFNESS [None]
  - OFF LABEL USE [None]
  - PANCREATIC ABSCESS [None]
  - PANCREATIC FISTULA [None]
  - PANCREATITIS CHRONIC [None]
  - PANCREATITIS NECROTISING [None]
  - RENAL FAILURE ACUTE [None]
  - RENAL TUBULAR NECROSIS [None]
  - RESPIRATORY FAILURE [None]
  - SEPTIC SHOCK [None]
  - SUPRAVENTRICULAR TACHYCARDIA [None]
  - SYSTEMIC INFLAMMATORY RESPONSE SYNDROME [None]
  - TROPONIN INCREASED [None]
